FAERS Safety Report 8431722-3 (Version None)
Quarter: 2012Q2

REPORT INFORMATION
  Report Type: 
  Country: None (occurrence: None)
  Receive Date: 20120607
  Receipt Date: 20120607
  Transmission Date: 20120825
  Serious: Yes (Hospitalization)
  Sender: FDA-Public Use
  Company Number: None

PATIENT
  Sex: Male

DRUGS (23)
  1. RIBAVIRIN [Suspect]
     Indication: HEPATITIS C
     Dosage: 600MG BID O
     Route: 048
     Dates: start: 20120501, end: 20120501
  2. WELLBUTRIN [Concomitant]
  3. NEURONTIN [Concomitant]
  4. ALLOPURINOL [Concomitant]
  5. FOLIC ACID [Concomitant]
  6. MAGNESIUM [Concomitant]
  7. MORPHINE [Concomitant]
  8. OXYCODONE HCL [Concomitant]
  9. POTASSIUM ACETATE [Concomitant]
  10. INCIVEK [Concomitant]
  11. ACIPHEX [Concomitant]
  12. M.V.I. [Concomitant]
  13. CALCIUM W/ VIT D [Concomitant]
  14. PEGASYS [Suspect]
     Indication: HEPATITIS C
     Dosage: 180MCG QW SC
     Route: 058
     Dates: start: 20120501, end: 20120501
  15. METOCLOPRAMIDE [Concomitant]
  16. CYMBALTA [Concomitant]
  17. SPIRONOLACTONE [Concomitant]
  18. NEDOLOL [Concomitant]
  19. XIFAXAN [Concomitant]
  20. BONIVA [Concomitant]
  21. COMBIVENT [Concomitant]
  22. LASIX [Concomitant]
  23. MIACALCIN [Concomitant]

REACTIONS (2)
  - CONDITION AGGRAVATED [None]
  - ENCEPHALOPATHY [None]
